FAERS Safety Report 9303880 (Version 1)
Quarter: 2013Q2

REPORT INFORMATION
  Report Type: Spontaneous
  Country: FI (occurrence: FI)
  Receive Date: 20130522
  Receipt Date: 20130522
  Transmission Date: 20140414
  Serious: Yes (Life-Threatening, Hospitalization, Other)
  Sender: FDA-Public Use
  Company Number: FI-009507513-1305FIN011468

PATIENT
  Sex: 0

DRUGS (1)
  1. ESMERON [Suspect]

REACTIONS (3)
  - Endotracheal intubation complication [Unknown]
  - Hypoventilation [Unknown]
  - Tracheostomy [Unknown]
